FAERS Safety Report 17369967 (Version 1)
Quarter: 2020Q1

REPORT INFORMATION
  Report Type: Spontaneous
  Country: US (occurrence: US)
  Receive Date: 20200121
  Receipt Date: 20200121
  Transmission Date: 20200409
  Serious: No
  Sender: FDA-Public Use
  Company Number: None

PATIENT
  Age: 70 Year
  Sex: Male
  Weight: 84 kg

DRUGS (1)
  1. LEVOFLOXACIN (LEVOFLOXACIN 500MG TAB) [Suspect]
     Active Substance: LEVOFLOXACIN
     Indication: PANCYTOPENIA
     Route: 048
     Dates: start: 20191109, end: 20191129

REACTIONS (2)
  - Febrile neutropenia [None]
  - Tendon rupture [None]

NARRATIVE: CASE EVENT DATE: 20191129
